FAERS Safety Report 8782948 (Version 1)
Quarter: 2012Q4

REPORT INFORMATION
  Report Type: Report from Study
  Country: IL (occurrence: IL)
  Receive Date: 20120913
  Receipt Date: 20120913
  Transmission Date: 20130627
  Serious: Yes (Hospitalization)
  Sender: FDA-Public Use
  Company Number: IL-TEVA-358318ISR

PATIENT
  Age: 58 Year
  Sex: Female

DRUGS (5)
  1. RASAGILINE MESYLATE [Suspect]
     Indication: PARKINSON^S DISEASE
     Dosage: 1 Milligram Daily; OL phase
     Route: 048
     Dates: start: 20090803, end: 20110808
  2. RASAGILINE MESYLATE [Suspect]
     Dosage: 1 Milligram Daily; Active phase
     Route: 048
     Dates: start: 20060829, end: 20070507
  3. RASAGILINE MESYLATE [Suspect]
     Dosage: DB phase
     Route: 048
     Dates: start: 20051219, end: 20060826
  4. ELTROXIN [Concomitant]
     Indication: HYPOTHYROIDISM
     Dosage: QD
     Route: 048
     Dates: start: 2012
  5. SUMAYRIDEX [Concomitant]
     Indication: MIGRAINE
     Route: 048

REACTIONS (1)
  - Papillary thyroid cancer [Recovered/Resolved with Sequelae]
